FAERS Safety Report 5863181-9 (Version None)
Quarter: 2008Q3

REPORT INFORMATION
  Report Type: 
  Country: None (occurrence: None)
  Receive Date: 20080828
  Receipt Date: 20080821
  Transmission Date: 20090109
  Serious: Yes (Other)
  Sender: FDA-Public Use
  Company Number: GB-ROCHE-582759

PATIENT
  Sex: Female
  Weight: 115.6 kg

DRUGS (2)
  1. ORLISTAT [Suspect]
     Indication: OBESITY
     Route: 048
     Dates: start: 20080512
  2. LANSOPRAZOLE [Concomitant]
     Route: 048

REACTIONS (2)
  - OPTIC NEURITIS [None]
  - VISION BLURRED [None]
